FAERS Safety Report 9976873 (Version 1)
Quarter: 2014Q1

REPORT INFORMATION
  Report Type: Report from Study
  Country: US (occurrence: US)
  Receive Date: 20140306
  Receipt Date: 20140306
  Transmission Date: 20141002
  Serious: No
  Sender: FDA-Public Use
  Company Number: US-ABBVIE-13P-163-1167684-00

PATIENT
  Sex: Male

DRUGS (5)
  1. HUMIRA [Suspect]
     Indication: PSORIASIS
     Dates: start: 20131021
  2. ECOTRIN [Concomitant]
     Indication: PRODUCT USED FOR UNKNOWN INDICATION
  3. GLYBURIDE [Concomitant]
     Indication: BLOOD GLUCOSE INCREASED
  4. METOPROLOL [Concomitant]
     Indication: HYPERTENSION
  5. METFORMIN [Concomitant]
     Indication: BLOOD GLUCOSE INCREASED

REACTIONS (1)
  - Rotator cuff syndrome [Not Recovered/Not Resolved]
